FAERS Safety Report 4767813-8 (Version None)
Quarter: 2005Q3

REPORT INFORMATION
  Report Type: 
  Country: None (occurrence: None)
  Receive Date: 20050912
  Receipt Date: 20050905
  Transmission Date: 20060218
  Serious: Yes (Hospitalization)
  Sender: FDA-Public Use
  Company Number: GBWYE835815JUL05

PATIENT
  Age: 53 Year
  Sex: Female

DRUGS (11)
  1. EFFEXOR XR [Suspect]
     Indication: SCHIZOAFFECTIVE DISORDER
     Dosage: SEE IMAGE
     Route: 048
     Dates: start: 19980901, end: 20010101
  2. EFFEXOR XR [Suspect]
     Indication: SCHIZOAFFECTIVE DISORDER
     Dosage: SEE IMAGE
     Route: 048
     Dates: start: 20010101, end: 20020101
  3. EFFEXOR XR [Suspect]
     Indication: SCHIZOAFFECTIVE DISORDER
     Dosage: SEE IMAGE
     Route: 048
     Dates: start: 20020101, end: 20050201
  4. EFFEXOR XR [Suspect]
     Indication: SCHIZOAFFECTIVE DISORDER
     Dosage: SEE IMAGE
     Route: 048
     Dates: start: 20050201, end: 20050712
  5. EFFEXOR XR [Suspect]
     Indication: SCHIZOAFFECTIVE DISORDER
     Dosage: SEE IMAGE
     Route: 048
     Dates: start: 20050715, end: 20050717
  6. EFFEXOR XR [Suspect]
     Indication: SCHIZOAFFECTIVE DISORDER
     Dosage: SEE IMAGE
     Route: 048
     Dates: start: 20050718, end: 20050721
  7. VALPROATE SODIUM [Concomitant]
  8. QUETIAPINE FUMARATE [Concomitant]
  9. QUETIAPINE FUMARATE [Concomitant]
  10. DIAZEPAM [Concomitant]
  11. RISPERIDONE (RISPERIDONE) [Concomitant]

REACTIONS (5)
  - HYPONATRAEMIA [None]
  - HYPOTENSION [None]
  - NOSOCOMIAL INFECTION [None]
  - PNEUMONIA [None]
  - TREATMENT NONCOMPLIANCE [None]
